FAERS Safety Report 8822502 (Version 5)
Quarter: 2020Q3

REPORT INFORMATION
  Report Type: Spontaneous
  Country: BR (occurrence: BR)
  Receive Date: 20121003
  Receipt Date: 20200929
  Transmission Date: 20201103
  Serious: Yes (Death, Hospitalization, Other)
  Sender: FDA-Public Use
  Company Number: BR-AMGEN-BRASP2012062434

PATIENT
  Age: 57 Year
  Sex: Female
  Weight: 75 kg

DRUGS (3)
  1. ENBREL [Suspect]
     Active Substance: ETANERCEPT
     Dosage: 50 MG, ONCE WEEKLY
     Route: 058
     Dates: start: 2011
  2. ENBREL [Suspect]
     Active Substance: ETANERCEPT
     Indication: RHEUMATOID ARTHRITIS
     Dosage: UNK
     Route: 065
     Dates: start: 201011
  3. INSULIN [Concomitant]
     Active Substance: INSULIN NOS
     Dosage: 35 IU, 2X/DAY
     Dates: start: 2006

REACTIONS (6)
  - Injection site pain [Unknown]
  - Myocardial infarction [Fatal]
  - Obesity [Unknown]
  - Poor peripheral circulation [Unknown]
  - Diabetes mellitus [Fatal]
  - Diabetic complication [Unknown]

NARRATIVE: CASE EVENT DATE: 2011
